FAERS Safety Report 5590344-2 (Version None)
Quarter: 2008Q1

REPORT INFORMATION
  Report Type: 
  Country: None (occurrence: None)
  Receive Date: 20080114
  Receipt Date: 20080104
  Transmission Date: 20080703
  Serious: Yes (Other)
  Sender: FDA-Public Use
  Company Number: US-ABBOTT-08P-163-0432677-00

PATIENT

DRUGS (5)
  1. HUMIRA [Suspect]
     Indication: CROHN'S DISEASE
     Route: 058
     Dates: start: 20070801, end: 20071128
  2. HUMIRA [Suspect]
     Route: 058
     Dates: start: 20071201
  3. TYLOX [Suspect]
     Indication: DRUG USE FOR UNKNOWN INDICATION
     Route: 048
     Dates: start: 20071128
  4. DIPHENHYDRAMINE HYDROCHLORIDE [Concomitant]
     Indication: DRUG USE FOR UNKNOWN INDICATION
  5. STEROID SHOT [Concomitant]
     Indication: DRUG USE FOR UNKNOWN INDICATION
     Route: 050

REACTIONS (6)
  - APPENDICITIS [None]
  - HEADACHE [None]
  - INJECTION SITE PRURITUS [None]
  - INSOMNIA [None]
  - NASAL CONGESTION [None]
  - PRURITUS [None]
